FAERS Safety Report 17511194 (Version 3)
Quarter: 2020Q2

REPORT INFORMATION
  Report Type: Spontaneous
  Country: IT (occurrence: IT)
  Receive Date: 20200306
  Receipt Date: 20200601
  Transmission Date: 20200713
  Serious: Yes (Hospitalization, Other)
  Sender: FDA-Public Use
  Company Number: NVSC2020IT061435

PATIENT
  Age: 50 Year
  Sex: Female

DRUGS (9)
  1. MEKINIST [Suspect]
     Active Substance: TRAMETINIB DIMETHYL SULFOXIDE
     Indication: THYROID CANCER METASTATIC
     Dosage: 2 MG, QD (STOPPED IN OCT)
     Route: 048
     Dates: start: 201902
  2. MEKINIST [Suspect]
     Active Substance: TRAMETINIB DIMETHYL SULFOXIDE
     Indication: LUNG NEOPLASM MALIGNANT
  3. MEKINIST [Suspect]
     Active Substance: TRAMETINIB DIMETHYL SULFOXIDE
     Indication: MALIGNANT MELANOMA
  4. PACLITAXEL. [Suspect]
     Active Substance: PACLITAXEL
     Indication: ADJUVANT THERAPY
     Dosage: THE PATIENT RECEIVED 6 CYCLES.
     Route: 065
  5. PACLITAXEL. [Suspect]
     Active Substance: PACLITAXEL
     Indication: OVARIAN CANCER STAGE III
  6. CARBOPLATIN. [Suspect]
     Active Substance: CARBOPLATIN
     Indication: OVARIAN CANCER STAGE III
  7. CARBOPLATIN. [Suspect]
     Active Substance: CARBOPLATIN
     Indication: ADJUVANT THERAPY
     Dosage: THE PATIENT RECEIVED 6 CYCLES
     Route: 065
  8. MEKINIST [Suspect]
     Active Substance: TRAMETINIB DIMETHYL SULFOXIDE
     Indication: OVARIAN CANCER STAGE III
  9. BEVACIZUMAB. [Suspect]
     Active Substance: BEVACIZUMAB
     Indication: OVARIAN CANCER STAGE III
     Dosage: FROM THE SECOND CYCLE OF CHEMOTHERAPY. WHEN CHEMOTHERAPY STOPPED RECEIVED 22 CYCLES AS MAINTENANCE.
     Route: 065
     Dates: start: 2016

REACTIONS (4)
  - Hypertension [Recovering/Resolving]
  - Abdominal pain [Recovered/Resolved]
  - Intestinal obstruction [Recovered/Resolved]
  - Skin toxicity [Recovered/Resolved]

NARRATIVE: CASE EVENT DATE: 20191002
